FAERS Safety Report 14300377 (Version 3)
Quarter: 2018Q4

REPORT INFORMATION
  Report Type: Spontaneous
  Country: FR (occurrence: FR)
  Receive Date: 20171219
  Receipt Date: 20181023
  Transmission Date: 20190204
  Serious: Yes (Hospitalization, Other)
  Sender: FDA-Public Use
  Company Number: FR-MERCK KGAA-2037374

PATIENT
  Age: 44 Year
  Sex: Female

DRUGS (1)
  1. EUTHYROX [Suspect]
     Active Substance: LEVOTHYROXINE SODIUM
     Indication: POST PROCEDURAL HYPOTHYROIDISM

REACTIONS (32)
  - Malaise [None]
  - Anxiety [None]
  - Headache [None]
  - Pain in extremity [None]
  - Mood altered [None]
  - Hyperthyroidism [None]
  - Weight fluctuation [None]
  - Depressed mood [None]
  - Tension [None]
  - Chest pain [None]
  - Nervousness [None]
  - Personal relationship issue [None]
  - Nausea [None]
  - Eye pain [None]
  - Vertigo [None]
  - Fatigue [None]
  - Disturbance in attention [None]
  - Irritability [None]
  - Asthenia [None]
  - Crying [None]
  - Loss of personal independence in daily activities [None]
  - Pulse pressure increased [None]
  - Hypothyroidism [None]
  - Insomnia [Not Recovered/Not Resolved]
  - Anti-thyroid antibody positive [None]
  - Tachycardia [None]
  - Memory impairment [None]
  - Apathy [None]
  - Hypertension [None]
  - Blood thyroid stimulating hormone increased [None]
  - Gastrointestinal disorder [None]
  - Sense of oppression [None]

NARRATIVE: CASE EVENT DATE: 20170909
